FAERS Safety Report 6667240-2 (Version None)
Quarter: 2010Q2

REPORT INFORMATION
  Report Type: 
  Country: None (occurrence: None)
  Receive Date: 20100401
  Receipt Date: 20100401
  Transmission Date: 20101027
  Serious: Yes (Hospitalization)
  Sender: FDA-Public Use
  Company Number: None

PATIENT
  Age: 60 Year
  Sex: Female
  Weight: 110 kg

DRUGS (7)
  1. WARFARIN SODIUM [Suspect]
     Indication: ANTICOAGULANT THERAPY
     Dosage: 4 MG DAILY PO
     Route: 048
     Dates: start: 20100307, end: 20100312
  2. OXYCODONE, [Concomitant]
  3. OXYCODONE HCL AND ACETAMINOPHEN [Concomitant]
  4. WARFARIN SODIUM [Concomitant]
  5. LEBETALOL, [Concomitant]
  6. LISINOPRIL AND HYDROCHLOROTHIAZIDE [Concomitant]
  7. DIAZEPAM [Concomitant]

REACTIONS (7)
  - ASTHENIA [None]
  - CONFUSIONAL STATE [None]
  - DIZZINESS [None]
  - EROSIVE OESOPHAGITIS [None]
  - HAEMOGLOBIN DECREASED [None]
  - HYPOTENSION [None]
  - PEPTIC ULCER [None]
